FAERS Safety Report 4976084-9 (Version None)
Quarter: 2006Q2

REPORT INFORMATION
  Report Type: 
  Country: None (occurrence: None)
  Receive Date: 20060412
  Receipt Date: 20060407
  Transmission Date: 20061013
  Serious: Yes (Hospitalization)
  Sender: FDA-Public Use
  Company Number: FRP06000394

PATIENT
  Age: 90 Year
  Sex: Female

DRUGS (10)
  1. ACTONEL [Suspect]
     Indication: OSTEOPOROSIS
     Dosage: 35 MG, 1/WEEK, ORAL
     Route: 048
     Dates: end: 20060208
  2. EFFEXOR [Suspect]
     Dosage: 75 MG, DAILY, ORAL
     Route: 048
     Dates: end: 20060208
  3. KARDEGIC            (ACETYLSALICYLATE LYSINE) [Concomitant]
  4. OMEPRAZOLE [Concomitant]
  5. ZOLPIDEM TARTRATE [Concomitant]
  6. FIXICAL (CALCIUM CARBONATE) [Concomitant]
  7. ACETAMINOPHEN [Concomitant]
  8. FUCUS (HOMEOPATICS NOS) [Concomitant]
  9. DEXERYL                (WHITE SOFT PARAFFIN, PARAFFIN, LIQUID, GLYCERO [Concomitant]
  10. MOVICOL [Concomitant]

REACTIONS (4)
  - EPISTAXIS [None]
  - HAEMOGLOBIN DECREASED [None]
  - HYPERTENSION [None]
  - MELAENA [None]
